FAERS Safety Report 8102424-8 (Version None)
Quarter: 2012Q1

REPORT INFORMATION
  Report Type: 
  Country: None (occurrence: None)
  Receive Date: 20120131
  Receipt Date: 20120131
  Transmission Date: 20120608
  Serious: Yes (Life-Threatening)
  Sender: FDA-Public Use
  Company Number: None

PATIENT
  Sex: Male
  Weight: 68.0396 kg

DRUGS (1)
  1. ULORIC [Suspect]
     Dosage: 1 TABLET DAY
     Dates: start: 20110701

REACTIONS (1)
  - CEREBROVASCULAR ACCIDENT [None]
